FAERS Safety Report 12166565 (Version 4)
Quarter: 2016Q2

REPORT INFORMATION
  Report Type: Spontaneous
  Country: JP (occurrence: JP)
  Receive Date: 20160309
  Receipt Date: 20160609
  Transmission Date: 20160815
  Serious: Yes (Other)
  Sender: FDA-Public Use
  Company Number: JP-ROCHE-1722303

PATIENT
  Sex: Male

DRUGS (2)
  1. LUCENTIS [Suspect]
     Active Substance: RANIBIZUMAB
     Indication: DIABETIC RETINAL OEDEMA
     Dosage: IN BOTH EYES
     Route: 050
     Dates: start: 201403
  2. LUCENTIS [Suspect]
     Active Substance: RANIBIZUMAB
     Dosage: IN BOTH EYES
     Route: 050
     Dates: start: 201404, end: 201404

REACTIONS (3)
  - Cerebellar infarction [Unknown]
  - Diabetes mellitus [Unknown]
  - Diabetic retinal oedema [Unknown]
